FAERS Safety Report 20463107 (Version 1)
Quarter: 2022Q1

REPORT INFORMATION
  Report Type: Spontaneous
  Country: US (occurrence: US)
  Receive Date: 20220211
  Receipt Date: 20220211
  Transmission Date: 20220423
  Serious: No
  Sender: FDA-Public Use
  Company Number: US-PERRIGO-21US005013

PATIENT
  Age: 82 Year
  Sex: Female
  Weight: 74.83 kg

DRUGS (3)
  1. NAPROXEN SODIUM [Suspect]
     Active Substance: NAPROXEN SODIUM
     Indication: Myalgia
     Dosage: 220 MG, QD
     Route: 048
     Dates: start: 2020, end: 2020
  2. NAPROXEN SODIUM [Suspect]
     Active Substance: NAPROXEN SODIUM
     Indication: Arthralgia
     Dosage: 220 MG, QD
     Route: 048
     Dates: start: 20210406, end: 20210411
  3. NAPROXEN SODIUM [Suspect]
     Active Substance: NAPROXEN SODIUM
     Dosage: 440 MG, QD
     Route: 048
     Dates: start: 20210412, end: 20210413

REACTIONS (1)
  - Expired product administered [Recovered/Resolved]

NARRATIVE: CASE EVENT DATE: 20210406
